FAERS Safety Report 10775593 (Version 1)
Quarter: 2015Q1

REPORT INFORMATION
  Report Type: Spontaneous
  Country: US (occurrence: None)
  Receive Date: 20150206
  Receipt Date: 20150206
  Transmission Date: 20150721
  Serious: Yes (Disabling)
  Sender: FDA-Public Use
  Company Number: None

PATIENT
  Age: 59 Year
  Sex: Female
  Weight: 54.43 kg

DRUGS (12)
  1. XELODA [Suspect]
     Active Substance: CAPECITABINE
     Indication: METASTASES TO SPINE
     Dosage: 500 MG, 3X500 MG: AM, 4X500 MG: PM, AM + PM, MOUTH?
     Route: 048
     Dates: start: 20141016, end: 20141226
  2. COQ10 [Concomitant]
     Active Substance: UBIDECARENONE
  3. ZOFRAN [Concomitant]
     Active Substance: ONDANSETRON HYDROCHLORIDE
  4. PROTONIX [Concomitant]
     Active Substance: PANTOPRAZOLE SODIUM
  5. MULTI [Concomitant]
  6. CALCIUM [Concomitant]
     Active Substance: CALCIUM
  7. VITAMIN D3 [Concomitant]
     Active Substance: CHOLECALCIFEROL
  8. XELODA [Suspect]
     Active Substance: CAPECITABINE
     Indication: BREAST CANCER STAGE IV
     Dosage: 500 MG, 3X500 MG: AM, 4X500 MG: PM, AM + PM, MOUTH?
     Route: 048
     Dates: start: 20141016, end: 20141226
  9. XELODA [Suspect]
     Active Substance: CAPECITABINE
     Indication: METASTASES TO LIVER
     Dosage: 500 MG, 3X500 MG: AM, 4X500 MG: PM, AM + PM, MOUTH?
     Route: 048
     Dates: start: 20141016, end: 20141226
  10. NAPROXAN [Concomitant]
  11. XELODA [Suspect]
     Active Substance: CAPECITABINE
     Indication: BREAST CANCER METASTATIC
     Dosage: 500 MG, 3X500 MG: AM, 4X500 MG: PM, AM + PM, MOUTH?
     Route: 048
     Dates: start: 20141016, end: 20141226
  12. VITAMIN C [Concomitant]
     Active Substance: ASCORBIC ACID

REACTIONS (6)
  - Vomiting [None]
  - Nausea [None]
  - Hepatic pain [None]
  - Constipation [None]
  - Pain [None]
  - Abdominal pain upper [None]

NARRATIVE: CASE EVENT DATE: 20141224
